FAERS Safety Report 8400444 (Version 2)
Quarter: 2013Q1

REPORT INFORMATION
  Report Type: Spontaneous
  Country: US (occurrence: US)
  Receive Date: 20120210
  Receipt Date: 20130219
  Transmission Date: 20140127
  Serious: No
  Sender: FDA-Public Use
  Company Number: US-BRISTOL-MYERS SQUIBB COMPANY-15609134

PATIENT
  Age: 59 Year
  Sex: Female
  Weight: 74.83 kg

DRUGS (19)
  1. ORENCIA [Suspect]
     Indication: RHEUMATOID ARTHRITIS
     Dosage: NO OF INFUSIONS = 1
     Route: 058
     Dates: start: 20110103
  2. ACIDOPHILUS [Concomitant]
  3. ATROVENT [Concomitant]
  4. BONIVA [Concomitant]
     Dosage: 1 DF = 10 UNS,BONIVA CO Q
  5. CRESTOR [Concomitant]
  6. CYMBALTA [Concomitant]
  7. EPIPEN [Concomitant]
     Dosage: EPIPEN INJ
  8. FISH OIL [Concomitant]
  9. FLEXERIL [Concomitant]
  10. FLONASE [Concomitant]
  11. GABAPENTIN [Concomitant]
  12. KLONOPIN [Concomitant]
  13. METOPROLOL [Concomitant]
  14. PREMARIN [Concomitant]
  15. PREVACID [Concomitant]
  16. SINGULAIR [Concomitant]
  17. TOPAMAX [Concomitant]
  18. ULTRAM [Concomitant]
  19. VICODIN [Concomitant]

REACTIONS (5)
  - Pain [Unknown]
  - Fatigue [Unknown]
  - Somnolence [Unknown]
  - Nausea [Recovered/Resolved]
  - Rheumatoid arthritis [Unknown]
